FAERS Safety Report 7218625 (Version 2)
Quarter: 2014Q2

REPORT INFORMATION
  Report Type: Report from Study
  Country: AU (occurrence: AU)
  Receive Date: 20091215
  Receipt Date: 20140424
  Transmission Date: 20141212
  Serious: Yes (Other)
  Sender: FDA-Public Use
  Company Number: PHBS2001AU08362

PATIENT
  Age: 22 Year
  Sex: Male

DRUGS (4)
  1. CLOZARIL [Suspect]
     Dosage: 450 MG, DAILY
     Route: 048
     Dates: start: 19970121, end: 20010813
  2. CLOZARIL [Suspect]
     Dosage: UNK
     Dates: start: 2013
  3. BACTRIM [Suspect]
     Dosage: 1 DF, BID
     Dates: start: 20010811
  4. ANTIPSYCHOTICS [Concomitant]

REACTIONS (4)
  - Lower respiratory tract infection [Recovered/Resolved]
  - Neutropenia [Recovered/Resolved]
  - Leukopenia [Recovered/Resolved]
  - Mental status changes [Unknown]
